FAERS Safety Report 14163076 (Version 1)
Quarter: 2017Q4

REPORT INFORMATION
  Report Type: Report from Study
  Country: US (occurrence: US)
  Receive Date: 20171106
  Receipt Date: 20171106
  Transmission Date: 20180321
  Serious: Yes (Other)
  Sender: FDA-Public Use
  Company Number: US-TESARO, INC.-US-2017TSO03738

PATIENT

DRUGS (1)
  1. ZEJULA [Suspect]
     Active Substance: NIRAPARIB
     Indication: OVARIAN CANCER
     Dosage: 200 MG, QD
     Route: 048
     Dates: start: 20171007

REACTIONS (10)
  - Pain [Not Recovered/Not Resolved]
  - Parosmia [Unknown]
  - Fatigue [Not Recovered/Not Resolved]
  - Nausea [Unknown]
  - Decreased appetite [Not Recovered/Not Resolved]
  - Fluid intake reduced [Unknown]
  - Constipation [Not Recovered/Not Resolved]
  - Dysgeusia [Unknown]
  - Incorrect dose administered [None]
  - Dehydration [Not Recovered/Not Resolved]
